FAERS Safety Report 18928962 (Version 1)
Quarter: 2021Q1

REPORT INFORMATION
  Report Type: Spontaneous
  Country: US (occurrence: US)
  Receive Date: 20210223
  Receipt Date: 20210223
  Transmission Date: 20210420
  Serious: No
  Sender: FDA-Public Use
  Company Number: US-BAUSCH-BL-2021-005257

PATIENT
  Sex: Male

DRUGS (9)
  1. RELISTOR [Suspect]
     Active Substance: METHYLNALTREXONE BROMIDE
     Dosage: ANOTHER PRESCRIPTION RE?STARTED 450MG ONCE DAILY IN MORNING 30 MINUTES BEFORE HIS FIRST MEAL
     Route: 065
  2. ASPIRIN. [Concomitant]
     Active Substance: ASPIRIN
     Indication: PRODUCT USED FOR UNKNOWN INDICATION
  3. TAMSULOSIN [Concomitant]
     Active Substance: TAMSULOSIN
     Indication: PRODUCT USED FOR UNKNOWN INDICATION
  4. RELISTOR [Suspect]
     Active Substance: METHYLNALTREXONE BROMIDE
     Indication: CONSTIPATION
     Dosage: FOR 3 OR 4 DAYS
     Route: 065
  5. MOVANTIK [Suspect]
     Active Substance: NALOXEGOL OXALATE
     Indication: CONSTIPATION
     Route: 065
  6. CRESTOR [Concomitant]
     Active Substance: ROSUVASTATIN CALCIUM
     Indication: PRODUCT USED FOR UNKNOWN INDICATION
  7. PERCOCET [Concomitant]
     Active Substance: ACETAMINOPHEN\OXYCODONE HYDROCHLORIDE
     Indication: PRODUCT USED FOR UNKNOWN INDICATION
     Dosage: 10MG/325 MG
  8. XARELTO [Concomitant]
     Active Substance: RIVAROXABAN
     Indication: PRODUCT USED FOR UNKNOWN INDICATION
  9. RELISTOR [Suspect]
     Active Substance: METHYLNALTREXONE BROMIDE
     Dosage: TOOK 3 A DAY FOR ABOUT 1 WEEK AND RAN OUT OVER THREE WEEKS AGO
     Route: 065

REACTIONS (5)
  - Extra dose administered [Unknown]
  - Therapy interrupted [Unknown]
  - Ill-defined disorder [Unknown]
  - Drug ineffective [Unknown]
  - Incorrect dose administered [Unknown]
